FAERS Safety Report 8205092-X (Version None)
Quarter: 2012Q1

REPORT INFORMATION
  Report Type: 
  Country: None (occurrence: None)
  Receive Date: 20120313
  Receipt Date: 20120306
  Transmission Date: 20120608
  Serious: Yes (Other)
  Sender: FDA-Public Use
  Company Number: FR-ABBOTT-12P-056-0912170-00

PATIENT
  Sex: Female

DRUGS (3)
  1. REYATAZ [Interacting]
     Indication: HIV INFECTION
     Route: 048
     Dates: start: 20090701, end: 20120207
  2. FLUTICASONE PROPIONATE/SALMETEROL [Interacting]
     Indication: ASTHMA
     Dosage: DF: 500/50 MICROGRAMS
     Route: 055
     Dates: end: 20120207
  3. NORVIR [Suspect]
     Indication: HIV INFECTION
     Route: 048
     Dates: start: 20090701, end: 20120207

REACTIONS (8)
  - CUSHINGOID [None]
  - HYPERCORTICOIDISM [None]
  - SKIN FRAGILITY [None]
  - WEIGHT INCREASED [None]
  - HAEMATOMA [None]
  - HYPERTENSION [None]
  - DRUG INTERACTION [None]
  - MUSCLE ATROPHY [None]
